FAERS Safety Report 22774759 (Version 2)
Quarter: 2024Q3

REPORT INFORMATION
  Report Type: Spontaneous
  Country: US (occurrence: US)
  Receive Date: 20230802
  Receipt Date: 20240912
  Transmission Date: 20241016
  Serious: No
  Sender: GLENMARK
  Company Number: US-GLENMARK PHARMACEUTICALS-2023GMK083712

PATIENT

DRUGS (2)
  1. NORETHINDRONE [Suspect]
     Active Substance: NORETHINDRONE
     Indication: Product used for unknown indication
     Dosage: UNK (STARTED SEVERAL YEARS BEFORE)
     Route: 065
  2. NORETHINDRONE [Suspect]
     Active Substance: NORETHINDRONE
     Dosage: UNK (BAD BATCH)
     Route: 065
     Dates: start: 202307

REACTIONS (2)
  - Dysmenorrhoea [Unknown]
  - Product quality issue [Unknown]

NARRATIVE: CASE EVENT DATE: 20230709
